FAERS Safety Report 5179130-5 (Version None)
Quarter: 2006Q4

REPORT INFORMATION
  Report Type: 
  Country: None (occurrence: None)
  Receive Date: 20061219
  Receipt Date: 20061201
  Transmission Date: 20070319
  Serious: Yes (Hospitalization)
  Sender: FDA-Public Use
  Company Number: PHHO2006US20479

PATIENT
  Age: 34 Year
  Sex: Male
  Weight: 66.9 kg

DRUGS (4)
  1. MYCOPHENOLATE MOFETIL [Suspect]
     Indication: RENAL TRANSPLANT
     Dosage: 1500 MG, BID
     Route: 048
     Dates: start: 20061122, end: 20061206
  2. NEORAL [Suspect]
     Indication: HEART TRANSPLANT
     Dosage: 125 MG, BID
     Route: 048
     Dates: start: 20061123, end: 20061205
  3. THEOPHYLLINE [Suspect]
  4. PREDNISONE TAB [Suspect]
     Indication: HEART TRANSPLANT
     Dosage: NOT REPORTED
     Route: 048
     Dates: start: 20061125

REACTIONS (13)
  - CEREBRAL HAEMORRHAGE [None]
  - CONVULSION [None]
  - HEADACHE [None]
  - LETHARGY [None]
  - LOSS OF CONSCIOUSNESS [None]
  - MEMORY IMPAIRMENT [None]
  - MENTAL STATUS CHANGES [None]
  - MUSCLE TWITCHING [None]
  - OXYGEN SATURATION DECREASED [None]
  - SUBDURAL HAEMATOMA [None]
  - SUBDURAL HAEMORRHAGE [None]
  - URINARY INCONTINENCE [None]
  - VERTIGO [None]
